FAERS Safety Report 14401500 (Version 2)
Quarter: 2018Q2

REPORT INFORMATION
  Report Type: Report from Study
  Country: None (occurrence: US)
  Receive Date: 20180117
  Receipt Date: 20180423
  Transmission Date: 20180711
  Serious: Yes (Other)
  Sender: FDA-Public Use
  Company Number: US-ABBVIE-17K-163-2142161-00

PATIENT
  Age: 48 Year
  Sex: Female

DRUGS (4)
  1. DEPAKOTE [Suspect]
     Active Substance: DIVALPROEX SODIUM
     Indication: SEIZURE
     Route: 048
     Dates: end: 201801
  2. HUMIRA [Suspect]
     Active Substance: ADALIMUMAB
     Indication: ANKYLOSING SPONDYLITIS
     Route: 058
     Dates: start: 20171009, end: 201712
  3. VITAMIN D [Concomitant]
     Active Substance: CHOLECALCIFEROL
     Indication: HYPOVITAMINOSIS
  4. FLUOXETINE [Concomitant]
     Active Substance: FLUOXETINE HYDROCHLORIDE
     Indication: ANXIETY

REACTIONS (15)
  - Injection site swelling [Unknown]
  - Seizure [Not Recovered/Not Resolved]
  - Injection site pain [Recovered/Resolved]
  - Increased appetite [Not Recovered/Not Resolved]
  - Bundle branch block left [Not Recovered/Not Resolved]
  - Peripheral swelling [Not Recovered/Not Resolved]
  - Hepatic enzyme increased [Not Recovered/Not Resolved]
  - Injection site pain [Unknown]
  - Peripheral swelling [Not Recovered/Not Resolved]
  - Injection site pruritus [Unknown]
  - Dental prosthesis placement [Unknown]
  - Joint swelling [Not Recovered/Not Resolved]
  - Ankylosing spondylitis [Not Recovered/Not Resolved]
  - Pain [Unknown]
  - Weight increased [Not Recovered/Not Resolved]

NARRATIVE: CASE EVENT DATE: 2014
